FAERS Safety Report 11331701 (Version 1)
Quarter: 2015Q3

REPORT INFORMATION
  Report Type: Report from Study
  Country: BR (occurrence: BR)
  Receive Date: 20150803
  Receipt Date: 20150803
  Transmission Date: 20151125
  Serious: Yes (Death, Hospitalization, Other)
  Sender: FDA-Public Use
  Company Number: BR-ABBVIE-15K-020-1436722-00

PATIENT
  Sex: Male
  Weight: 75 kg

DRUGS (1)
  1. HUMIRA [Suspect]
     Active Substance: ADALIMUMAB
     Indication: RHEUMATOID ARTHRITIS
     Route: 058
     Dates: start: 20141209

REACTIONS (8)
  - Malaise [Unknown]
  - Bronchioloalveolar carcinoma [Fatal]
  - Rheumatoid arthritis [Fatal]
  - Vomiting [Unknown]
  - Acute kidney injury [Fatal]
  - Metastases to liver [Fatal]
  - Systemic inflammatory response syndrome [Fatal]
  - Pain [Unknown]
